FAERS Safety Report 13619344 (Version 3)
Quarter: 2022Q4

REPORT INFORMATION
  Report Type: Spontaneous
  Country: US (occurrence: US)
  Receive Date: 20170606
  Receipt Date: 20221008
  Transmission Date: 20230112
  Serious: Yes (Other)
  Sender: FDA-Public Use
  Company Number: US-PURDUE-USA-2016-0132275

PATIENT
  Age: 59 Year
  Sex: Female

DRUGS (1)
  1. BUTRANS [Suspect]
     Active Substance: BUPRENORPHINE
     Indication: Pain
     Dosage: 20 MCG/HR, WEEKLY
     Route: 062

REACTIONS (3)
  - Drug dependence [Unknown]
  - Cardiac disorder [Unknown]
  - Application site discolouration [Recovered/Resolved]

NARRATIVE: CASE EVENT DATE: 20160101
